FAERS Safety Report 21091455 (Version 1)
Quarter: 2022Q3

REPORT INFORMATION
  Report Type: Spontaneous
  Country: None (occurrence: US)
  Receive Date: 20220716
  Receipt Date: 20220716
  Transmission Date: 20221027
  Serious: No
  Sender: FDA-Public Use
  Company Number: US-Person and Covey-2130948

PATIENT
  Sex: Female

DRUGS (1)
  1. SOLBAR ZINC SPF38 [Suspect]
     Active Substance: HOMOSALATE\OCTINOXATE\ZINC OXIDE
     Indication: Heavy exposure to ultraviolet light
     Route: 003
     Dates: start: 20220430, end: 20220531

REACTIONS (1)
  - Administration site joint erythema [Recovered/Resolved]

NARRATIVE: CASE EVENT DATE: 20220430
